FAERS Safety Report 17616579 (Version 1)
Quarter: 2020Q2

REPORT INFORMATION
  Report Type: Spontaneous
  Country: CN (occurrence: CN)
  Receive Date: 20200402
  Receipt Date: 20200402
  Transmission Date: 20200713
  Serious: Yes (Other)
  Sender: FDA-Public Use
  Company Number: CN-ROCHE-2572175

PATIENT
  Age: 62 Year
  Sex: Female

DRUGS (8)
  1. ZOLEDRONIC ACID [Concomitant]
     Active Substance: ZOLEDRONIC ACID
     Indication: POSTOPERATIVE CARE
     Route: 065
     Dates: start: 20200110
  2. DOCETAXEL. [Concomitant]
     Active Substance: DOCETAXEL
     Indication: POSTOPERATIVE CARE
     Route: 065
     Dates: start: 20200110
  3. PALBOCICLIB [Concomitant]
     Active Substance: PALBOCICLIB
     Indication: POSTOPERATIVE CARE
     Dosage: 2CYCLES, PER DAY
     Route: 065
     Dates: start: 20191029, end: 20191231
  4. ZOLEDRONIC ACID [Concomitant]
     Active Substance: ZOLEDRONIC ACID
     Route: 065
     Dates: start: 20200131
  5. PACLITAXEL ALBUMIN [Concomitant]
     Active Substance: PACLITAXEL
     Indication: POSTOPERATIVE CARE
     Dosage: PER WEEK, DAY 1,8,15, 28 DAYS AS ONE CYCLE
     Route: 065
     Dates: start: 20200131
  6. DOCETAXEL. [Concomitant]
     Active Substance: DOCETAXEL
     Route: 065
     Dates: start: 20200131
  7. FULVESTRANT. [Concomitant]
     Active Substance: FULVESTRANT
     Indication: POSTOPERATIVE CARE
     Dosage: 28 DAYS AS ONE CYCLE, 2CYCLES
     Route: 065
     Dates: start: 20191029, end: 20191231
  8. XELODA [Suspect]
     Active Substance: CAPECITABINE
     Indication: POSTOPERATIVE CARE
     Dosage: 1 CYCLE/3 WEEKS
     Route: 048
     Dates: start: 20200110

REACTIONS (2)
  - Bone marrow failure [Recovering/Resolving]
  - Gastrointestinal disorder [Recovered/Resolved]
